FAERS Safety Report 7622892-5 (Version None)
Quarter: 2011Q3

REPORT INFORMATION
  Report Type: 
  Country: None (occurrence: None)
  Receive Date: 20110720
  Receipt Date: 20110712
  Transmission Date: 20111222
  Serious: Yes (Hospitalization, Other)
  Sender: FDA-Public Use
  Company Number: US-BAYER-201034270NA

PATIENT
  Age: 22 Year
  Sex: Female
  Weight: 77.098 kg

DRUGS (1)
  1. YASMIN [Suspect]
     Indication: CONTRACEPTION
     Dosage: UNK UNK, UNK
     Route: 048
     Dates: start: 20040101, end: 20090101

REACTIONS (4)
  - CHOLECYSTITIS [None]
  - CHOLECYSTECTOMY [None]
  - INJURY [None]
  - CHOLELITHIASIS [None]
